FAERS Safety Report 10197541 (Version 1)
Quarter: 2014Q2

REPORT INFORMATION
  Report Type: Spontaneous
  Country: US (occurrence: US)
  Receive Date: 20140527
  Receipt Date: 20140527
  Transmission Date: 20141212
  Serious: No
  Sender: FDA-Public Use
  Company Number: US-NOVEN-14US009385

PATIENT
  Age: 63 Year
  Sex: Female

DRUGS (2)
  1. MINIVELLE [Suspect]
     Indication: HORMONE REPLACEMENT THERAPY
     Dosage: 0.05 MG/DAY, UNK
     Route: 062
  2. MINIVELLE [Suspect]
     Dosage: 0.1 MG/DAY, UNK
     Route: 062
     Dates: start: 2014, end: 2014

REACTIONS (1)
  - Nausea [Recovering/Resolving]
